FAERS Safety Report 22111899 (Version 3)
Quarter: 2023Q2

REPORT INFORMATION
  Report Type: Report from Study
  Country: US (occurrence: US)
  Receive Date: 20230318
  Receipt Date: 20230526
  Transmission Date: 20230721
  Serious: Yes (Other)
  Sender: FDA-Public Use
  Company Number: US-002147023-NVSC2023US057751

PATIENT
  Age: 48 Year
  Sex: Male

DRUGS (1)
  1. KESIMPTA [Suspect]
     Active Substance: OFATUMUMAB
     Indication: Relapsing-remitting multiple sclerosis
     Dosage: 20 MG, QMO
     Route: 058
     Dates: start: 20230128

REACTIONS (4)
  - Neuropathy peripheral [Unknown]
  - Rash erythematous [Not Recovered/Not Resolved]
  - Psychomotor hyperactivity [Unknown]
  - Insomnia [Unknown]

NARRATIVE: CASE EVENT DATE: 20230310
